FAERS Safety Report 25414989 (Version 1)
Quarter: 2025Q2

REPORT INFORMATION
  Report Type: Spontaneous
  Country: US (occurrence: US)
  Receive Date: 20250609
  Receipt Date: 20250609
  Transmission Date: 20250717
  Serious: Yes (Other)
  Sender: BIOMARIN
  Company Number: US-SA-2025SA160133

PATIENT

DRUGS (1)
  1. LARONIDASE [Suspect]
     Active Substance: LARONIDASE
     Indication: Mucopolysaccharidosis I
     Dosage: 5.8 (UNITS NOT SPECIFIED), QW
     Route: 042
     Dates: start: 202409

REACTIONS (1)
  - Infusion site thrombosis [Not Recovered/Not Resolved]
